FAERS Safety Report 6708335-4 (Version None)
Quarter: 2010Q2

REPORT INFORMATION
  Report Type: 
  Country: None (occurrence: None)
  Receive Date: 20100503
  Receipt Date: 20091029
  Transmission Date: 20101027
  Serious: No
  Sender: FDA-Public Use
  Company Number: US-ASTRAZENECA-2009SE23839

PATIENT
  Sex: Male

DRUGS (2)
  1. NEXIUM [Suspect]
     Indication: ERUCTATION
     Route: 048
  2. PRILOSEC [Suspect]
     Indication: ERUCTATION
     Route: 048

REACTIONS (3)
  - ABDOMINAL DISTENSION [None]
  - ACNE [None]
  - FAECES DISCOLOURED [None]
